FAERS Safety Report 9350549 (Version 1)
Quarter: 2013Q2

REPORT INFORMATION
  Report Type: Spontaneous
  Country: US (occurrence: None)
  Receive Date: 20130613
  Receipt Date: 20130613
  Transmission Date: 20140414
  Serious: No
  Sender: FDA-Public Use
  Company Number: None

PATIENT
  Sex: Female

DRUGS (12)
  1. SUTENT [Suspect]
     Indication: RENAL CANCER
     Dosage: 50 MG QD 4 WEEKS ON/2 WEEKS OFF PO
     Route: 048
     Dates: start: 20130514
  2. MORPHINE [Concomitant]
  3. GABAPENTIN [Concomitant]
  4. LORATADINE [Concomitant]
  5. SENNA [Concomitant]
  6. OXYCODONE [Concomitant]
  7. PROAIR HFA [Concomitant]
  8. CALCIUM [Concomitant]
  9. FISH OIL [Concomitant]
  10. MS CONTIN [Concomitant]
  11. MULTI VITAMIN [Concomitant]
  12. AMLODIPINE [Concomitant]

REACTIONS (4)
  - Cough [None]
  - Abdominal pain [None]
  - Nausea [None]
  - Myalgia [None]
